FAERS Safety Report 21627224 (Version 2)
Quarter: 2023Q1

REPORT INFORMATION
  Report Type: Spontaneous
  Country: US (occurrence: US)
  Receive Date: 20221122
  Receipt Date: 20230302
  Transmission Date: 20230417
  Serious: No
  Sender: FDA-Public Use
  Company Number: US-BRISTOL-MYERS SQUIBB COMPANY-2022-141205

PATIENT
  Age: 89 Year
  Sex: Female
  Weight: 49.89 kg

DRUGS (1)
  1. REVLIMID [Suspect]
     Active Substance: LENALIDOMIDE
     Indication: Follicular lymphoma
     Dosage: 21D OF 28D CYCLE
     Route: 048

REACTIONS (2)
  - Constipation [Unknown]
  - Neutrophil count decreased [Recovering/Resolving]
